FAERS Safety Report 12723913 (Version 1)
Quarter: 2016Q3

REPORT INFORMATION
  Report Type: Spontaneous
  Country: US (occurrence: US)
  Receive Date: 20160904
  Receipt Date: 20160904
  Transmission Date: 20161109
  Serious: Yes (Other)
  Sender: FDA-Public Use
  Company Number: None

PATIENT
  Age: 75 Year
  Sex: Male
  Weight: 76.05 kg

DRUGS (14)
  1. ATORVASTATIN (GENERIC LIPITOR) [Concomitant]
     Active Substance: ATORVASTATIN
  2. NITROSTAT (NITROGLYCERIN) [Concomitant]
  3. OMEPRAZOLE DR [Concomitant]
     Active Substance: OMEPRAZOLE
  4. ANTI-DIARRHEAL (IMODIUM) [Concomitant]
  5. ESBRIET (PIRFENIDONE) [Concomitant]
  6. ZOLPIDEM TARTRATE (GENERIC AMBIEN) [Concomitant]
  7. ASPRIN [Concomitant]
     Active Substance: ASPIRIN
  8. NITROLINGUAL [Concomitant]
     Active Substance: NITROGLYCERIN
  9. TAMSULOSIN (GENERIC FLOMAX) [Concomitant]
     Active Substance: TAMSULOSIN
  10. VENTOLIN HFA (ALBUTEROL SULFATE) [Concomitant]
  11. ESBRIET [Suspect]
     Active Substance: PIRFENIDONE
     Indication: IDIOPATHIC PULMONARY FIBROSIS
     Route: 048
  12. CLOPIDOGREL (GENERIC PLAVIX) [Concomitant]
  13. CODEINE-GUAIFEN [Concomitant]
  14. MULTI VITAMIN [Concomitant]
     Active Substance: VITAMINS

REACTIONS (2)
  - Partner stress [None]
  - Dysgeusia [None]

NARRATIVE: CASE EVENT DATE: 20151205
